FAERS Safety Report 15368610 (Version 1)
Quarter: 2018Q3

REPORT INFORMATION
  Report Type: Spontaneous
  Country: FR (occurrence: FR)
  Receive Date: 20180911
  Receipt Date: 20180911
  Transmission Date: 20181010
  Serious: Yes (Hospitalization, Other)
  Sender: FDA-Public Use
  Company Number: FR-CONCORDIA PHARMACEUTICALS INC.-GSH201809-003241

PATIENT
  Age: 60 Year
  Sex: Male

DRUGS (3)
  1. PIPERACILLINE TAZOBACTAM [Suspect]
     Active Substance: PIPERACILLIN SODIUM\TAZOBACTAM SODIUM
     Indication: LIVER ABSCESS
     Route: 042
     Dates: start: 20180622, end: 20180806
  2. ALFUZOSIN TABLET [Suspect]
     Active Substance: ALFUZOSIN
     Indication: BLADDER CATHETER REMOVAL
     Route: 048
     Dates: start: 20180615, end: 20180806
  3. OFLOXACIN. [Suspect]
     Active Substance: OFLOXACIN
     Indication: LIVER ABSCESS
     Route: 048
     Dates: start: 20180620, end: 20180806

REACTIONS (1)
  - Agranulocytosis [Recovered/Resolved]

NARRATIVE: CASE EVENT DATE: 201806
